FAERS Safety Report 21033518 (Version 1)
Quarter: 2022Q3

REPORT INFORMATION
  Report Type: Other
  Country: None (occurrence: US)
  Receive Date: 20220701
  Receipt Date: 20220701
  Transmission Date: 20221027
  Serious: Yes (Hospitalization)
  Sender: FDA-Public Use
  Company Number: US-CHEMI SPA-2130486

PATIENT
  Age: 15 Year
  Sex: Male

DRUGS (4)
  1. TEMOZOLOMIDE [Suspect]
     Active Substance: TEMOZOLOMIDE
     Indication: Anaplastic astrocytoma
  2. LOMUSTINE [Concomitant]
     Active Substance: LOMUSTINE
  3. DABRAFENIB [Concomitant]
     Active Substance: DABRAFENIB
  4. TRAMETINIB [Concomitant]
     Active Substance: TRAMETINIB

REACTIONS (3)
  - Seizure [Unknown]
  - Headache [Unknown]
  - Behaviour disorder [Unknown]
